FAERS Safety Report 24377849 (Version 2)
Quarter: 2024Q4

REPORT INFORMATION
  Report Type: Spontaneous
  Country: PT (occurrence: PT)
  Receive Date: 20240930
  Receipt Date: 20241015
  Transmission Date: 20250115
  Serious: Yes (Hospitalization, Other)
  Sender: CHEPLAPHARM
  Company Number: PT-CHEPLA-2024012276

PATIENT
  Age: 6 Decade
  Sex: Female

DRUGS (6)
  1. CLONAZEPAM [Suspect]
     Active Substance: CLONAZEPAM
     Indication: Bipolar disorder
     Dosage: DAILY DOSE: 2 MILLIGRAM
  2. QUETIAPINE [Suspect]
     Active Substance: QUETIAPINE
     Indication: Bipolar disorder
     Dosage: DAILY DOSE: 300 MILLIGRAM
  3. QUETIAPINE [Suspect]
     Active Substance: QUETIAPINE
     Indication: Bipolar disorder
     Dosage: DAILY DOSE: 100 MILLIGRAM
  4. VALPROATE [Suspect]
     Active Substance: VALPROIC ACID
     Indication: Bipolar disorder
  5. LORAZEPAM [Suspect]
     Active Substance: LORAZEPAM
     Indication: Bipolar disorder
     Dosage: DAILY DOSE: 5 MILLIGRAM
  6. LITHIUM [Suspect]
     Active Substance: LITHIUM
     Indication: Toxicity to various agents
     Dosage: MORE THAN 25 YEARS?DAILY DOSE: 800 MILLIGRAM

REACTIONS (7)
  - Cerebellar atrophy [Unknown]
  - Cerebral atrophy [Unknown]
  - Pneumonia [Unknown]
  - Hypercholesterolaemia [Unknown]
  - Intentional product use issue [Unknown]
  - Drug ineffective [Unknown]
  - Off label use [Recovered/Resolved]

NARRATIVE: CASE EVENT DATE: 20200601
